FAERS Safety Report 8396838-9 (Version None)
Quarter: 2012Q2

REPORT INFORMATION
  Report Type: 
  Country: None (occurrence: None)
  Receive Date: 20120530
  Receipt Date: 20120524
  Transmission Date: 20120825
  Serious: Yes (Death)
  Sender: FDA-Public Use
  Company Number: GB-PFIZER INC-2012064144

PATIENT
  Age: 74 Year
  Sex: Male

DRUGS (1)
  1. LYRICA [Suspect]
     Indication: NEURALGIA
     Dosage: 150 MG (FREQUENCY UNKNOWN) AT VARIOUS DOSAGES
     Route: 048

REACTIONS (2)
  - NEOPLASM MALIGNANT [None]
  - DYSPHAGIA [None]
